FAERS Safety Report 5901873-3 (Version None)
Quarter: 2008Q3

REPORT INFORMATION
  Report Type: 
  Country: None (occurrence: None)
  Receive Date: 20080929
  Receipt Date: 20080718
  Transmission Date: 20090109
  Serious: Yes (Hospitalization)
  Sender: FDA-Public Use
  Company Number: CH-BAYER-200822744GPV

PATIENT
  Age: 52 Year
  Sex: Male

DRUGS (11)
  1. FLUDARABINE [Suspect]
     Indication: CHRONIC LYMPHOCYTIC LEUKAEMIA
     Dosage: UNIT DOSE: 53 MG
     Route: 041
     Dates: start: 20080620, end: 20080622
  2. RITUXIMAB [Suspect]
     Indication: CHRONIC LYMPHOCYTIC LEUKAEMIA
     Dates: start: 20080620, end: 20080620
  3. ZYLORIC [Suspect]
     Indication: CHRONIC LYMPHOCYTIC LEUKAEMIA
     Route: 048
     Dates: start: 20080619, end: 20080627
  4. VALTREX [Suspect]
     Indication: CHRONIC LYMPHOCYTIC LEUKAEMIA
     Route: 048
     Dates: start: 20080619, end: 20080627
  5. BACTRIM DS [Suspect]
     Indication: CHRONIC LYMPHOCYTIC LEUKAEMIA
     Route: 048
     Dates: start: 20080619, end: 20080627
  6. BETAFERON [Concomitant]
     Indication: MULTIPLE SCLEROSIS
     Route: 058
  7. LIORESAL [Concomitant]
     Indication: MULTIPLE SCLEROSIS
     Dosage: UNIT DOSE: 25 MG
     Route: 048
     Dates: end: 20080627
  8. ACETAMINOPHEN [Concomitant]
     Dosage: UNIT DOSE: 1 G
     Route: 048
     Dates: end: 20080627
  9. CALCIMAGON-D3 [Concomitant]
     Dosage: UNIT DOSE: 500 MG
     Route: 048
     Dates: end: 20080627
  10. LEUCOVORIN CALCIUM [Concomitant]
     Dates: end: 20080619
  11. CLEXANE [Concomitant]
     Route: 058

REACTIONS (1)
  - RASH MACULO-PAPULAR [None]
